FAERS Safety Report 7462861-1 (Version None)
Quarter: 2011Q2

REPORT INFORMATION
  Report Type: 
  Country: None (occurrence: None)
  Receive Date: 20110506
  Receipt Date: 20110423
  Transmission Date: 20111010
  Serious: Yes (Hospitalization)
  Sender: FDA-Public Use
  Company Number: IT-JNJFOC-20110411552

PATIENT
  Sex: Female

DRUGS (4)
  1. DALTEPARIN SODIUM [Concomitant]
     Indication: ILL-DEFINED DISORDER
  2. FENTANYL [Suspect]
     Indication: PAIN
  3. LOSAZID [Concomitant]
     Indication: ILL-DEFINED DISORDER
  4. PANTORC [Concomitant]
     Indication: ILL-DEFINED DISORDER

REACTIONS (3)
  - ASTRINGENT THERAPY [None]
  - VERTIGO [None]
  - DIZZINESS [None]
